FAERS Safety Report 12737081 (Version 3)
Quarter: 2016Q4

REPORT INFORMATION
  Report Type: Report from Study
  Country: PL (occurrence: PL)
  Receive Date: 20160913
  Receipt Date: 20161230
  Transmission Date: 20170207
  Serious: Yes (Hospitalization)
  Sender: FDA-Public Use
  Company Number: PL-CELGENEUS-POL-2016088120

PATIENT
  Age: 64 Year
  Sex: Male
  Weight: 129 kg

DRUGS (10)
  1. FENOFIBRATUM [Concomitant]
     Indication: HYPERLIPIDAEMIA
     Dosage: 200 MG
     Route: 048
     Dates: start: 20150326
  2. RAMIPRIL. [Concomitant]
     Active Substance: RAMIPRIL
     Indication: HYPERTENSION
     Dosage: 10 MG
     Route: 048
     Dates: start: 20140529
  3. CC-10004 [Suspect]
     Active Substance: APREMILAST
     Indication: PSORIATIC ARTHROPATHY
     Route: 048
     Dates: start: 20160927
  4. CARVEDILOL. [Concomitant]
     Active Substance: CARVEDILOL
     Indication: HYPERTENSION
     Dosage: 25 MG
     Route: 048
     Dates: start: 20140529
  5. AMLODIPINE [Concomitant]
     Active Substance: AMLODIPINE BESYLATE
     Indication: PULMONARY EMBOLISM
     Dosage: 10 MG
     Route: 048
     Dates: start: 20140529
  6. NAPROXENUM [Concomitant]
     Indication: PSORIATIC ARTHROPATHY
     Dosage: 1100 MG
     Route: 048
     Dates: start: 20140602
  7. CANDESARTAN [Concomitant]
     Active Substance: CANDESARTAN
     Indication: HYPERTENSION
     Dosage: 16 MG
     Route: 048
     Dates: start: 20150326
  8. CC-10004 [Suspect]
     Active Substance: APREMILAST
     Route: 048
     Dates: start: 20120320
  9. ALLOPURINOL. [Concomitant]
     Active Substance: ALLOPURINOL
     Indication: HYPERURICAEMIA
     Dosage: 200 MG
     Route: 048
     Dates: start: 20150326
  10. SPIRONOLACTONE. [Concomitant]
     Active Substance: SPIRONOLACTONE
     Indication: HYPERTENSION
     Dosage: 25 MG
     Route: 048
     Dates: start: 20150326

REACTIONS (1)
  - Pneumonia [Recovered/Resolved]

NARRATIVE: CASE EVENT DATE: 20160820
